FAERS Safety Report 16700122 (Version 4)
Quarter: 2019Q3

REPORT INFORMATION
  Report Type: Spontaneous
  Country: US (occurrence: US)
  Receive Date: 20190813
  Receipt Date: 20190824
  Transmission Date: 20191004
  Serious: Yes (Other)
  Sender: FDA-Public Use
  Company Number: PHEH2019US033185

PATIENT
  Sex: Female

DRUGS (3)
  1. XANAX [Suspect]
     Active Substance: ALPRAZOLAM
     Indication: PRODUCT USED FOR UNKNOWN INDICATION
     Route: 065
  2. CIPRODEX [Suspect]
     Active Substance: CIPROFLOXACIN HYDROCHLORIDE\DEXAMETHASONE
     Indication: OTITIS EXTERNA
     Dosage: 4 GTT, BID (FOR 7 DAYS)
     Route: 001
     Dates: start: 20190805
  3. NEOMYCIN SULFATE+POLYMYXIN B SULFATE+HYDROCORTISONE [Suspect]
     Active Substance: HYDROCORTISONE\NEOMYCIN SULFATE\POLYMYXIN B SULFATE
     Indication: PRODUCT USED FOR UNKNOWN INDICATION
     Dosage: UNK
     Route: 001

REACTIONS (8)
  - Rash [Unknown]
  - Scab [Unknown]
  - Seizure [Unknown]
  - Renal failure [Unknown]
  - Drug ineffective [Unknown]
  - Rash erythematous [Unknown]
  - Urticaria [Unknown]
  - Tympanic membrane perforation [Recovering/Resolving]
